FAERS Safety Report 12566777 (Version 1)
Quarter: 2016Q3

REPORT INFORMATION
  Report Type: Spontaneous
  Country: CN (occurrence: CN)
  Receive Date: 20160718
  Receipt Date: 20160718
  Transmission Date: 20161109
  Serious: Yes (Hospitalization)
  Sender: FDA-Public Use
  Company Number: CN-AKORN PHARMACEUTICALS-2016AKN00440

PATIENT
  Age: 50 Year
  Sex: Female

DRUGS (1)
  1. TRIAMCINOLONE ACETONIDE. [Suspect]
     Active Substance: TRIAMCINOLONE ACETONIDE
     Indication: TENOSYNOVITIS
     Dosage: 40 MG, ONCE, AT THE BASE OF THE RIGHT THUMB ON THE PALMAR ASPECT
     Route: 065

REACTIONS (2)
  - Incorrect route of drug administration [Recovered/Resolved]
  - Extremity necrosis [Not Recovered/Not Resolved]
